FAERS Safety Report 11269984 (Version 1)
Quarter: 2015Q3

REPORT INFORMATION
  Report Type: Spontaneous
  Country: CN (occurrence: CN)
  Receive Date: 20150714
  Receipt Date: 20150714
  Transmission Date: 20151125
  Serious: Yes (Other)
  Sender: FDA-Public Use
  Company Number: CN-OTSUKA-2015_005191

PATIENT
  Age: 37 Year
  Sex: Female

DRUGS (1)
  1. DACOGEN [Suspect]
     Active Substance: DECITABINE
     Indication: CHRONIC MYELOID LEUKAEMIA
     Dosage: 20 MG/M2, 1 IN 1 DAY 5 DAY REGIMEN
     Route: 042

REACTIONS (5)
  - Leukocytosis [Recovered/Resolved]
  - Thrombocytopenia [Recovered/Resolved]
  - Anaemia [Recovered/Resolved]
  - Neutropenia [Recovered/Resolved]
  - Off label use [Unknown]
